FAERS Safety Report 6449678-1 (Version None)
Quarter: 2009Q4

REPORT INFORMATION
  Report Type: 
  Country: None (occurrence: None)
  Receive Date: 20091120
  Receipt Date: 20090121
  Transmission Date: 20100525
  Serious: Yes (Hospitalization, Other)
  Sender: FDA-Public Use
  Company Number: US-AMGEN-QUU329646

PATIENT
  Sex: Female

DRUGS (2)
  1. ENBREL [Suspect]
     Indication: RHEUMATOID ARTHRITIS
     Route: 058
     Dates: start: 20020201, end: 20080501
  2. ARAVA [Concomitant]
     Route: 048

REACTIONS (2)
  - CARDIAC FAILURE [None]
  - LUNG NEOPLASM MALIGNANT [None]
